FAERS Safety Report 4352757-6 (Version None)
Quarter: 2004Q2

REPORT INFORMATION
  Report Type: 
  Country: None (occurrence: None)
  Receive Date: 20040429
  Receipt Date: 20040415
  Transmission Date: 20050107
  Serious: Yes (Other)
  Sender: FDA-Public Use
  Company Number: USA-2002-0003285

PATIENT
  Age: 50 Year
  Sex: Female
  Weight: 66.2 kg

DRUGS (5)
  1. OXYCONTIN [Suspect]
     Indication: PAIN
     Dosage: 40 MG, BID, ORAL; 80 MG, Q12H PRN, ORAL; 20 MG, BID, ORAL
     Route: 048
  2. ZOLOFT [Concomitant]
  3. LASIX [Concomitant]
  4. XANAX [Concomitant]
  5. VIOXX [Concomitant]

REACTIONS (23)
  - ANXIETY [None]
  - ARTHRALGIA [None]
  - BLOOD PRESSURE SYSTOLIC INCREASED [None]
  - CHEILITIS [None]
  - CHEST DISCOMFORT [None]
  - CONDITION AGGRAVATED [None]
  - CONSTIPATION [None]
  - CREPITATIONS [None]
  - DEPRESSION [None]
  - DRUG DEPENDENCE [None]
  - DRUG WITHDRAWAL SYNDROME [None]
  - FAMILY STRESS [None]
  - HYPERHIDROSIS [None]
  - NASAL CONGESTION [None]
  - NAUSEA [None]
  - NODAL OSTEOARTHRITIS [None]
  - OEDEMA [None]
  - OVERDOSE [None]
  - PAIN [None]
  - POSTNASAL DRIP [None]
  - PRODUCTIVE COUGH [None]
  - TENOSYNOVITIS [None]
  - TOOTH EROSION [None]
